FAERS Safety Report 12891420 (Version 3)
Quarter: 2016Q4

REPORT INFORMATION
  Report Type: Spontaneous
  Country: IT (occurrence: IT)
  Receive Date: 20161028
  Receipt Date: 20161117
  Transmission Date: 20170207
  Serious: Yes (Life-Threatening, Hospitalization)
  Sender: FDA-Public Use
  Company Number: IT-ASTRAZENECA-2016SF10547

PATIENT
  Age: 9195 Day
  Sex: Male

DRUGS (5)
  1. PARACETAMOL [Suspect]
     Active Substance: ACETAMINOPHEN
     Dosage: ABOUT 10/15 TABLETS
     Dates: start: 20160317, end: 20160317
  2. LEXOTAN [Suspect]
     Active Substance: BROMAZEPAM
     Dosage: 2.5 MG/ML, HALF BOTTLE
     Route: 048
     Dates: start: 20160317, end: 20160317
  3. BENTELAN [Suspect]
     Active Substance: BETAMETHASONE SODIUM PHOSPHATE
     Dosage: 1 MG TABLETS (ABOUT 5/6 TABLETS)
     Route: 048
     Dates: start: 20160317, end: 20160317
  4. MEPRAL [Suspect]
     Active Substance: OMEPRAZOLE SODIUM
     Dosage: 20.0MG UNKNOWN
     Route: 048
     Dates: start: 20160317, end: 20160317
  5. CEFIXORAL [Suspect]
     Active Substance: CEFIXIME
     Dosage: ABOUT 10 TABLETS
     Dates: start: 20160317, end: 20160317

REACTIONS (6)
  - Somnolence [Unknown]
  - Suicide attempt [Unknown]
  - Mydriasis [Unknown]
  - Patient uncooperative [Unknown]
  - Drug abuse [Recovering/Resolving]
  - Sopor [Recovering/Resolving]

NARRATIVE: CASE EVENT DATE: 20160317
